FAERS Safety Report 4990930-4 (Version None)
Quarter: 2006Q2

REPORT INFORMATION
  Report Type: 
  Country: None (occurrence: None)
  Receive Date: 20060503
  Receipt Date: 20051026
  Transmission Date: 20061013
  Serious: Yes (Hospitalization)
  Sender: FDA-Public Use
  Company Number: US-MERCK-0510USA09515

PATIENT
  Age: 57 Year
  Sex: Male
  Weight: 75 kg

DRUGS (15)
  1. ALLOPURINOL [Concomitant]
     Route: 065
  2. CELEBREX [Concomitant]
     Route: 065
  3. ACETAMINOPHEN AND PROPOXYPHENE NAPSYLATE [Concomitant]
     Route: 065
  4. PHENOBARBITAL [Concomitant]
     Route: 065
  5. NITROQUICK [Concomitant]
     Route: 065
  6. ACETAMINOPHEN AND HYDROCODONE BITARTRATE [Concomitant]
     Route: 065
  7. ZITHROMAX [Concomitant]
     Route: 065
  8. ULTRACET [Concomitant]
     Route: 065
  9. AMBIEN [Concomitant]
     Route: 065
  10. AMOXICILLIN [Concomitant]
     Route: 065
  11. GUAIFENESIN [Concomitant]
     Route: 065
  12. VIOXX [Suspect]
     Indication: ARTHRITIS
     Route: 048
     Dates: start: 20021120, end: 20040901
  13. VIOXX [Suspect]
     Route: 048
     Dates: start: 20000101, end: 20050301
  14. VIOXX [Suspect]
     Route: 048
     Dates: start: 20030401
  15. METOPROLOL [Concomitant]
     Route: 065

REACTIONS (12)
  - CARDIAC DISORDER [None]
  - CORONARY ARTERY DISEASE [None]
  - CORONARY ARTERY OCCLUSION [None]
  - CORONARY ARTERY STENOSIS [None]
  - CROHN'S DISEASE [None]
  - DYSPEPSIA [None]
  - GOUT [None]
  - HERNIA [None]
  - HYPERLIPIDAEMIA [None]
  - HYPERTENSION [None]
  - MYOCARDIAL INFARCTION [None]
  - REPERFUSION ARRHYTHMIA [None]
